FAERS Safety Report 12992722 (Version 2)
Quarter: 2018Q2

REPORT INFORMATION
  Report Type: Spontaneous
  Country: US (occurrence: US)
  Receive Date: 20161202
  Receipt Date: 20180629
  Transmission Date: 20180711
  Serious: No
  Sender: FDA-Public Use
  Company Number: US-JNJFOC-20161115217

PATIENT
  Sex: Male

DRUGS (14)
  1. LANOXIN [Concomitant]
     Active Substance: DIGOXIN
     Route: 048
  2. NORCO [Concomitant]
     Active Substance: ACETAMINOPHEN\HYDROCODONE BITARTRATE
     Dosage: 10-325 MG
     Route: 048
  3. TYLENOL [Concomitant]
     Active Substance: ACETAMINOPHEN
     Route: 048
  4. XANAX [Concomitant]
     Active Substance: ALPRAZOLAM
     Route: 048
  5. WELLBUTRIN [Concomitant]
     Active Substance: BUPROPION HYDROCHLORIDE
     Route: 048
  6. DELTASON [Concomitant]
     Active Substance: PREDNISONE
     Route: 048
  7. COUMADIN [Concomitant]
     Active Substance: WARFARIN SODIUM
     Route: 048
  8. LUPRON [Concomitant]
     Active Substance: LEUPROLIDE ACETATE
     Route: 030
  9. MIRALAX [Concomitant]
     Active Substance: POLYETHYLENE GLYCOL 3350
     Route: 048
  10. ASPIRIN. [Concomitant]
     Active Substance: ASPIRIN
     Route: 065
  11. PRILOSEC [Concomitant]
     Active Substance: OMEPRAZOLE MAGNESIUM
     Route: 048
  12. FLOMAX [Concomitant]
     Active Substance: TAMSULOSIN HYDROCHLORIDE
     Route: 048
  13. ZYTIGA [Suspect]
     Active Substance: ABIRATERONE ACETATE
     Indication: PROSTATE CANCER METASTATIC
     Route: 048
  14. MEGACE [Concomitant]
     Active Substance: MEGESTROL ACETATE
     Route: 048

REACTIONS (2)
  - Prostatic specific antigen increased [Unknown]
  - Back pain [Unknown]
